FAERS Safety Report 4450237-0 (Version None)
Quarter: 2004Q3

REPORT INFORMATION
  Report Type: 
  Country: None (occurrence: None)
  Receive Date: 20040914
  Receipt Date: 20040902
  Transmission Date: 20050211
  Serious: Yes (Hospitalization)
  Sender: FDA-Public Use
  Company Number: 2004231721FR

PATIENT
  Age: 88 Year
  Sex: Female

DRUGS (12)
  1. ALDACTONE [Suspect]
     Dosage: 12.5 MG, DAILY, ORAL
     Route: 048
  2. EUROBIOL [Concomitant]
  3. BISOPROLOL FUMARATE [Concomitant]
  4. SPECIAFOLDINE TABLET [Concomitant]
  5. DIFFU K CAPSULE [Concomitant]
  6. DIOVENOR (DIOSMIN) TABLET [Concomitant]
  7. BUSPAR [Concomitant]
  8. NEXIUM [Concomitant]
  9. ZOLOFT [Concomitant]
  10. ASPIRIN [Concomitant]
  11. TRINIPATCH [Concomitant]
  12. STILNOX (ZOLPIDEM) [Concomitant]

REACTIONS (3)
  - BLOOD CREATININE INCREASED [None]
  - KLEBSIELLA INFECTION [None]
  - PYELONEPHRITIS ACUTE [None]
